FAERS Safety Report 5453783-6 (Version None)
Quarter: 2007Q3

REPORT INFORMATION
  Report Type: 
  Country: None (occurrence: None)
  Receive Date: 20070917
  Receipt Date: 20070906
  Transmission Date: 20080115
  Serious: Yes (Hospitalization)
  Sender: FDA-Public Use
  Company Number: JP-MERCK-0705USA05293

PATIENT
  Age: 34 Year
  Sex: Female

DRUGS (4)
  1. SINGULAIR [Suspect]
     Indication: ASTHMA
     Route: 048
     Dates: start: 20070511, end: 20070101
  2. UNIPHYL [Suspect]
     Indication: ASTHMA
     Route: 048
     Dates: start: 20070515, end: 20070520
  3. UNASYN [Concomitant]
     Indication: BRONCHITIS
     Route: 042
     Dates: start: 20070511, end: 20070516
  4. PULMICORT [Concomitant]
     Indication: ASTHMA
     Dates: start: 20070513

REACTIONS (1)
  - ERYTHEMA MULTIFORME [None]
